FAERS Safety Report 15925527 (Version 2)
Quarter: 2019Q4

REPORT INFORMATION
  Report Type: Spontaneous
  Country: US (occurrence: US)
  Receive Date: 20190206
  Receipt Date: 20191211
  Transmission Date: 20200122
  Serious: Yes (Other)
  Sender: FDA-Public Use
  Company Number: US-PFIZER INC-2019048667

PATIENT
  Age: 52 Year
  Sex: Female
  Weight: 44 kg

DRUGS (2)
  1. PHENYTOIN SODIUM. [Suspect]
     Active Substance: PHENYTOIN SODIUM
     Indication: SEIZURE
     Dosage: 100 MG, (3 CAPSULES IN THE MORNING AND 3 CAPSULES AT NIGHT AND OCCASIONALLY 1 DURING THE DAY)
  2. SYNTHROID [Concomitant]
     Active Substance: LEVOTHYROXINE SODIUM
     Indication: THYROID DISORDER
     Dosage: 25 UG, 1X/DAY [EVERY MORNING BY MOUTH]
     Route: 048

REACTIONS (1)
  - Drug ineffective [Unknown]
